FAERS Safety Report 8462844-9 (Version None)
Quarter: 2012Q2

REPORT INFORMATION
  Report Type: 
  Country: None (occurrence: None)
  Receive Date: 20120625
  Receipt Date: 20120612
  Transmission Date: 20120825
  Serious: No
  Sender: FDA-Public Use
  Company Number: US-ASTRAZENECA-2010SE08579

PATIENT
  Age: 63 Year
  Sex: Female

DRUGS (7)
  1. IMITREX [Concomitant]
     Dosage: 100MG
  2. ZOMIG [Suspect]
     Route: 048
  3. AMERGE [Concomitant]
     Dosage: 2.5MG
  4. TOPAMAX [Concomitant]
     Dosage: 100MG
  5. ZOMIG [Suspect]
     Route: 048
  6. PAMELOR [Concomitant]
     Dosage: 25MG
  7. ZOMIG [Suspect]
     Route: 048

REACTIONS (9)
  - ANXIETY [None]
  - MIGRAINE [None]
  - STRESS [None]
  - INTENTIONAL DRUG MISUSE [None]
  - HEADACHE [None]
  - DEPRESSION [None]
  - PALPITATIONS [None]
  - NAUSEA [None]
  - MALAISE [None]
